FAERS Safety Report 7548582-5 (Version None)
Quarter: 2011Q2

REPORT INFORMATION
  Report Type: 
  Country: None (occurrence: None)
  Receive Date: 20110524
  Receipt Date: 20110228
  Transmission Date: 20111010
  Serious: No
  Sender: FDA-Public Use
  Company Number: 026239

PATIENT
  Sex: Male

DRUGS (1)
  1. CIMZIA [Suspect]
     Indication: CROHN'S DISEASE
     Dosage: 9400 MG 1X/4 WEEKS SUBCUTANEOUS), (200 MG 1X/2 WEEKS, FORM: PFS SUBCUTANEOUS)
     Route: 058
     Dates: start: 20100915

REACTIONS (1)
  - PILONIDAL SINUS REPAIR [None]
